FAERS Safety Report 6441820-1 (Version None)
Quarter: 2009Q4

REPORT INFORMATION
  Report Type: 
  Country: None (occurrence: None)
  Receive Date: 20091112
  Receipt Date: 20091028
  Transmission Date: 20100525
  Serious: Yes (Other)
  Sender: FDA-Public Use
  Company Number: A-US2009-27791

PATIENT
  Age: 34 Year
  Sex: Female
  Weight: 71.2 kg

DRUGS (3)
  1. TRACLEER [Suspect]
     Indication: PULMONARY HYPERTENSION
     Dosage: 62.5 MG ORAL
     Route: 048
     Dates: start: 20090930
  2. PREDNISONE TAB [Concomitant]
  3. FLEXERIL [Concomitant]

REACTIONS (5)
  - DARK CIRCLES UNDER EYES [None]
  - DYSPNOEA [None]
  - FACE OEDEMA [None]
  - FATIGUE [None]
  - SOMNOLENCE [None]
